FAERS Safety Report 12010062 (Version 1)
Quarter: 2016Q1

REPORT INFORMATION
  Report Type: Spontaneous
  Country: US (occurrence: US)
  Receive Date: 20160205
  Receipt Date: 20160205
  Transmission Date: 20160526
  Serious: Yes (Other)
  Sender: FDA-Public Use
  Company Number: US-ASTRAZENECA-2016SE10183

PATIENT
  Age: 86 Year
  Sex: Female

DRUGS (5)
  1. TOPROL XL [Suspect]
     Active Substance: METOPROLOL SUCCINATE
     Route: 048
  2. CRESTOR [Suspect]
     Active Substance: ROSUVASTATIN CALCIUM
     Route: 048
  3. PROTONICS [Concomitant]
     Route: 065
  4. ARIMIDEX [Suspect]
     Active Substance: ANASTROZOLE
     Route: 048
  5. PLAVIX [Concomitant]
     Active Substance: CLOPIDOGREL BISULFATE
     Route: 065

REACTIONS (2)
  - Myocardial infarction [Unknown]
  - Neoplasm malignant [Unknown]
